FAERS Safety Report 7009255-0 (Version None)
Quarter: 2010Q3

REPORT INFORMATION
  Report Type: 
  Country: None (occurrence: None)
  Receive Date: 20100923
  Receipt Date: 20100910
  Transmission Date: 20110219
  Serious: Yes (Death, Hospitalization)
  Sender: FDA-Public Use
  Company Number: US-SANOFI-AVENTIS-2010SA056769

PATIENT
  Age: 69 Year
  Sex: Male
  Weight: 84 kg

DRUGS (3)
  1. ARAVA [Suspect]
     Indication: RHEUMATOID ARTHRITIS
     Route: 058
  2. METHOTREXATE [Suspect]
     Indication: RHEUMATOID ARTHRITIS
     Dosage: LIFETIME DOSE } 1800 MG
     Route: 065
  3. DIFLUNISAL [Concomitant]

REACTIONS (6)
  - ACUTE HEPATIC FAILURE [None]
  - ACUTE MYOCARDIAL INFARCTION [None]
  - HEPATITIS B [None]
  - JAUNDICE [None]
  - LIVER FUNCTION TEST ABNORMAL [None]
  - RENAL FAILURE ACUTE [None]
